FAERS Safety Report 5867882-8 (Version None)
Quarter: 2008Q3

REPORT INFORMATION
  Report Type: 
  Country: None (occurrence: None)
  Receive Date: 20080902
  Receipt Date: 20080822
  Transmission Date: 20090109
  Serious: Yes (Other)
  Sender: FDA-Public Use
  Company Number: JP-PFIZER INC-2008071190

PATIENT
  Sex: Male
  Weight: 63 kg

DRUGS (7)
  1. GENOTROPIN [Suspect]
     Indication: HYPOPITUITARISM
  2. GENOTROPIN [Suspect]
  3. LEVOTHYROXINE SODIUM [Concomitant]
     Route: 048
  4. CORTONE [Concomitant]
     Route: 048
  5. DEPAKENE [Concomitant]
     Route: 048
  6. SELBEX [Concomitant]
     Indication: GASTRITIS
     Route: 048
  7. DESMOPRESSIN ACETATE [Concomitant]

REACTIONS (1)
  - PNEUMONIA [None]
